FAERS Safety Report 18498638 (Version 6)
Quarter: 2021Q2

REPORT INFORMATION
  Report Type: Report from Study
  Country: None (occurrence: IL)
  Receive Date: 20201113
  Receipt Date: 20210610
  Transmission Date: 20210717
  Serious: Yes (Life-Threatening, Hospitalization)
  Sender: FDA-Public Use
  Company Number: IL-ABBVIE-20K-082-3647128-00

PATIENT
  Age: 84 Year
  Sex: Female
  Weight: 88 kg

DRUGS (23)
  1. VENETOCLAX. [Suspect]
     Active Substance: VENETOCLAX
     Indication: ACUTE MYELOID LEUKAEMIA
     Route: 048
     Dates: start: 20191118, end: 20191119
  2. CALMANERVIN [Concomitant]
     Indication: ANXIOLYTIC THERAPY
     Dates: start: 20180923
  3. OMEPRADEX [Concomitant]
     Active Substance: OMEPRAZOLE
     Indication: PROPHYLAXIS
  4. DECITABINE. [Suspect]
     Active Substance: DECITABINE
     Dosage: CYCLE 8
     Route: 042
     Dates: start: 20200903, end: 20200908
  5. VASOPRIN [Concomitant]
     Indication: PROPHYLAXIS
     Dates: start: 20170110, end: 20201202
  6. DECITABINE. [Suspect]
     Active Substance: DECITABINE
     Dosage: CYCLE 5
     Route: 042
     Dates: start: 20200531, end: 20200606
  7. DECITABINE. [Suspect]
     Active Substance: DECITABINE
     Dosage: CYCLE 10
     Route: 042
     Dates: start: 20201025, end: 20201029
  8. ATENOLOL. [Concomitant]
     Active Substance: ATENOLOL
     Indication: HYPERTENSION
     Dates: start: 20180902
  9. NORMALOL [Concomitant]
     Active Substance: ATENOLOL
     Indication: PROPHYLAXIS
     Dates: start: 20090217, end: 20201202
  10. DECITABINE. [Suspect]
     Active Substance: DECITABINE
     Dosage: CYCLE 9
     Route: 042
     Dates: start: 20200927, end: 20201004
  11. DECITABINE. [Suspect]
     Active Substance: DECITABINE
     Dosage: CYCLE 3
     Route: 042
     Dates: start: 20200329, end: 20200402
  12. DECITABINE. [Suspect]
     Active Substance: DECITABINE
     Dosage: CYCLE 4
     Route: 042
     Dates: start: 20200426, end: 20200430
  13. VENETOCLAX. [Suspect]
     Active Substance: VENETOCLAX
     Route: 048
     Dates: start: 20200504, end: 20201005
  14. DECITABINE. [Suspect]
     Active Substance: DECITABINE
     Dosage: CYCLE 7
     Route: 042
     Dates: start: 20200728, end: 20200802
  15. BONDORMIN [Concomitant]
     Active Substance: BROTIZOLAM
     Indication: INSOMNIA
     Dates: start: 20180109
  16. VENETOCLAX. [Suspect]
     Active Substance: VENETOCLAX
     Route: 048
     Dates: start: 20191120, end: 20200503
  17. DECITABINE. [Suspect]
     Active Substance: DECITABINE
     Dosage: CYCLE 2
     Route: 042
     Dates: start: 20191231, end: 20200106
  18. CALCIUM CARBONATE AND VITAMIN D [Concomitant]
     Active Substance: CALCIUM CARBONATE\VITAMIN D
     Indication: OSTEOPOROSIS
     Dates: start: 20180902
  19. BONDORMIN [Concomitant]
     Active Substance: BROTIZOLAM
     Indication: SEDATIVE THERAPY
     Dates: start: 2018
  20. DECITABINE. [Suspect]
     Active Substance: DECITABINE
     Indication: ACUTE MYELOID LEUKAEMIA
     Dosage: CYCLE 1
     Route: 042
     Dates: start: 20191117, end: 20191123
  21. DECITABINE. [Suspect]
     Active Substance: DECITABINE
     Dosage: CYCLE 6
     Route: 042
     Dates: start: 20200628, end: 20200702
  22. OMEPRADEX [Concomitant]
     Active Substance: OMEPRAZOLE
     Indication: GASTROOESOPHAGEAL REFLUX DISEASE
     Dates: start: 20110626, end: 20201202
  23. LERCANIDIPINE [Concomitant]
     Active Substance: LERCANIDIPINE
     Indication: HYPERTENSION
     Dates: start: 20180902

REACTIONS (3)
  - Neutropenia [Recovered/Resolved]
  - Pyrexia [Recovered/Resolved with Sequelae]
  - Pneumonia [Recovered/Resolved with Sequelae]

NARRATIVE: CASE EVENT DATE: 20200112
